FAERS Safety Report 17168390 (Version 1)
Quarter: 2019Q4

REPORT INFORMATION
  Report Type: Spontaneous
  Country: IN (occurrence: IN)
  Receive Date: 20191218
  Receipt Date: 20191218
  Transmission Date: 20200122
  Serious: Yes (Hospitalization)
  Sender: FDA-Public Use
  Company Number: IN-CONCORD BIOTECH LIMITED-CBL201912-000026

PATIENT
  Age: 14 Year
  Sex: Male

DRUGS (4)
  1. BASILIXIMAB [Concomitant]
     Active Substance: BASILIXIMAB
     Indication: IMMUNOSUPPRESSION
     Dosage: 2 DOSES AS A INDUCTION THERAPY
  2. PREDNISOLONE. [Concomitant]
     Active Substance: PREDNISOLONE
     Dosage: TAPERED OFF BY 6 WEEKS ON FOLLOW UP
  3. TACROLIMUS. [Concomitant]
     Active Substance: TACROLIMUS
     Dosage: GOAL TROUGH 15-20
     Route: 048
  4. MYCOPHENOLATE MOFETIL CAPSULE USP, 250 MG [Suspect]
     Active Substance: MYCOPHENOLATE MOFETIL
     Route: 048

REACTIONS (1)
  - Febrile neutropenia [None]
